FAERS Safety Report 7069553-1 (Version None)
Quarter: 2010Q4

REPORT INFORMATION
  Report Type: 
  Country: None (occurrence: None)
  Receive Date: 20101028
  Receipt Date: 20100329
  Transmission Date: 20110411
  Serious: No
  Sender: FDA-Public Use
  Company Number: US-WYE-H14122610

PATIENT
  Sex: Female
  Weight: 57.66 kg

DRUGS (1)
  1. PROTONIX [Suspect]
     Indication: GASTRINOMA
     Dosage: 40 MG SEVERAL TIMES A DAY
     Route: 048
     Dates: start: 20090901, end: 20090901

REACTIONS (3)
  - NONSPECIFIC REACTION [None]
  - RASH ERYTHEMATOUS [None]
  - RASH MACULO-PAPULAR [None]
